FAERS Safety Report 16826001 (Version 1)
Quarter: 2019Q3

REPORT INFORMATION
  Report Type: Spontaneous
  Country: FR (occurrence: FR)
  Receive Date: 20190919
  Receipt Date: 20190919
  Transmission Date: 20191005
  Serious: Yes (Hospitalization)
  Sender: FDA-Public Use
  Company Number: FR-TEVA-2019-FR-1109007

PATIENT
  Age: 54 Year
  Sex: Male
  Weight: 98 kg

DRUGS (5)
  1. SILODYX 4 MG, GELULE [Concomitant]
     Dosage: 1 DOSAGE FORMS
     Route: 048
  2. PREDNISOLONE. [Suspect]
     Active Substance: PREDNISOLONE
     Indication: DYSURIA
     Dosage: 800 MG PER DAY
     Route: 048
     Dates: start: 20190621, end: 20190624
  3. ARCALION 200 MG, COMPRIME ENROBE [Concomitant]
     Dosage: 2 DOSAGE FORMS
     Route: 048
  4. METEOSPASMYL, CAPSULE MOLLE [Concomitant]
     Dosage: 3 DOSAGE FORMS
     Route: 048
  5. SPIFEN 400 MG, COMPRIME PELLICULE [Concomitant]
     Active Substance: IBUPROFEN
     Indication: DYSURIA
     Dosage: 3 DOSAGE FORMS
     Route: 048
     Dates: start: 20190621, end: 20190702

REACTIONS (1)
  - Cytomegalovirus infection [Recovered/Resolved]

NARRATIVE: CASE EVENT DATE: 20190711
